FAERS Safety Report 4338459-0 (Version None)
Quarter: 2004Q2

REPORT INFORMATION
  Report Type: 
  Country: None (occurrence: None)
  Receive Date: 20040409
  Receipt Date: 20040319
  Transmission Date: 20050107
  Serious: No
  Sender: FDA-Public Use
  Company Number: 7760

PATIENT

DRUGS (2)
  1. METHOTREXATE [Suspect]
     Indication: RHEUMATOID ARTHRITIS
     Dosage: 20 MG WEEKLY IM
     Route: 030
  2. FOLIC ACID [Concomitant]

REACTIONS (2)
  - DISEASE RECURRENCE [None]
  - LOWER RESPIRATORY TRACT INFECTION [None]
